FAERS Safety Report 13102222 (Version 1)
Quarter: 2017Q1

REPORT INFORMATION
  Report Type: Report from Study
  Country: CA (occurrence: CA)
  Receive Date: 20170110
  Receipt Date: 20170110
  Transmission Date: 20170428
  Serious: Yes (Congenital Anomaly, Other)
  Sender: FDA-Public Use
  Company Number: CA-MYLANLABS-2017M1001147

PATIENT

DRUGS (2)
  1. BUPRENORPHINE. [Suspect]
     Active Substance: BUPRENORPHINE
  2. BUPRENORPHINE HYDROCHLORIDE/NALOXONE HYDROCHLORIDE [Suspect]
     Active Substance: BUPRENORPHINE HYDROCHLORIDE\NALOXONE HYDROCHLORIDE

REACTIONS (4)
  - Maternal drugs affecting foetus [None]
  - Foetal exposure during pregnancy [Recovered/Resolved]
  - Cleft palate [Unknown]
  - Maternal exposure during pregnancy [None]
